FAERS Safety Report 9153769 (Version 1)
Quarter: 2013Q1

REPORT INFORMATION
  Report Type: Spontaneous
  Country: None (occurrence: None)
  Receive Date: 20130204
  Receipt Date: 20130204
  Transmission Date: 20140127
  Serious: Yes (Hospitalization, Other)
  Sender: FDA-Public Use
  Company Number: 2013/014

PATIENT
  Sex: Male

DRUGS (5)
  1. CEPHALEXIN [Suspect]
     Indication: PNEUMONIA
  2. CYCLOSPORIN [Suspect]
     Indication: NEPHRITIC SYNDROME
  3. ASPIRIN [Suspect]
     Indication: PRE-ECLAMPSIA
     Dosage: 75 MG, OD
  4. ASPIRIN [Suspect]
     Indication: PROPHYLAXIS
     Dosage: 75 MG, OD
  5. FERROUS SULPHATE [Suspect]
     Indication: ANAEMIA

REACTIONS (4)
  - Premature baby [None]
  - Maternal drugs affecting foetus [None]
  - Apgar score low [None]
  - Neonatal respiratory distress syndrome [None]
